FAERS Safety Report 9422402 (Version 2)
Quarter: 2013Q3

REPORT INFORMATION
  Report Type: Spontaneous
  Country: CH (occurrence: CH)
  Receive Date: 20130726
  Receipt Date: 20130802
  Transmission Date: 20140515
  Serious: Yes (Death)
  Sender: FDA-Public Use
  Company Number: CH-SANOFI-AVENTIS-2013SA073951

PATIENT
  Age: 25 Year
  Sex: Female

DRUGS (2)
  1. CHLOROQUINE (SALT NOT SPECIFIED) [Suspect]
     Indication: SUICIDE ATTEMPT
     Route: 048
  2. DIAZEPAM [Suspect]
     Indication: SUICIDE ATTEMPT
     Route: 048

REACTIONS (1)
  - Intentional overdose [Fatal]
